FAERS Safety Report 12644455 (Version 7)
Quarter: 2016Q4

REPORT INFORMATION
  Report Type: Spontaneous
  Country: US (occurrence: US)
  Receive Date: 20160811
  Receipt Date: 20161219
  Transmission Date: 20170207
  Serious: Yes (Hospitalization, Other)
  Sender: FDA-Public Use
  Company Number: US-PFIZER INC-2016372321

PATIENT
  Age: 56 Year
  Sex: Male
  Weight: 112.49 kg

DRUGS (14)
  1. LOVASTATIN. [Concomitant]
     Active Substance: LOVASTATIN
     Dosage: UNK
  2. LOPRESSOR [Concomitant]
     Active Substance: METOPROLOL TARTRATE
     Indication: HYPERTENSION
     Dosage: 100 MG, 2X/DAY
  3. TRADJENTA [Concomitant]
     Active Substance: LINAGLIPTIN
     Dosage: UNK
  4. INLYTA [Suspect]
     Active Substance: AXITINIB
     Dosage: 5 MG, 2X/DAY
     Route: 048
     Dates: start: 20160107
  5. FLUDROCORTISONE [Concomitant]
     Active Substance: FLUDROCORTISONE
     Indication: ADRENAL DISORDER
     Dosage: 0.1 MG, 1X/DAY
     Route: 048
     Dates: start: 2005
  6. OXYCODONE AND ACETAMINOPHEN [Concomitant]
     Active Substance: ACETAMINOPHEN\OXYCODONE HYDROCHLORIDE
     Indication: PAIN
     Dosage: 1 DF, AS NEEDED ([OXYCODONE 5MG]/ [ACETAMINOPHEN 325MG]) (1 EVERY 6 HRS PRN)
     Route: 048
  7. TRAMADOL. [Concomitant]
     Active Substance: TRAMADOL
     Dosage: UNK
  8. INLYTA [Suspect]
     Active Substance: AXITINIB
     Indication: RENAL CELL CARCINOMA
     Dosage: 5 MG, 2X/DAY
     Dates: start: 201510
  9. PREDNISONE. [Concomitant]
     Active Substance: PREDNISONE
     Indication: ADRENAL DISORDER
     Dosage: 7.5 MG, DAILY (1 AND 1/2 TABS)
     Route: 048
     Dates: start: 2005
  10. LISINOPRIL. [Concomitant]
     Active Substance: LISINOPRIL
     Indication: RENAL DISORDER
     Dosage: 10 MG, 1X/DAY
  11. LOPRESSOR [Concomitant]
     Active Substance: METOPROLOL TARTRATE
     Dosage: UNK
     Dates: start: 201505, end: 201506
  12. STERILE SALINE [Concomitant]
     Dosage: UNK (AS DIRECTED APPLY TO AFFECTED AREA EVERY TIME PATIENT SHOWERS)
  13. LISINOPRIL. [Concomitant]
     Active Substance: LISINOPRIL
     Indication: HYPERTENSION
     Dosage: 5 MG ,1 TABLET ONCE A DAY
     Route: 048
     Dates: start: 2005
  14. LOPRESSOR [Concomitant]
     Active Substance: METOPROLOL TARTRATE
     Dosage: 100 MG, 1X/DAY

REACTIONS (17)
  - Pain in extremity [Not Recovered/Not Resolved]
  - Erythema [Not Recovered/Not Resolved]
  - Dry mouth [Not Recovered/Not Resolved]
  - Tongue discomfort [Recovering/Resolving]
  - Dyspnoea [Not Recovered/Not Resolved]
  - Paraesthesia [Recovering/Resolving]
  - Skin induration [Recovered/Resolved]
  - Burning sensation [Recovering/Resolving]
  - Blood glucose increased [Not Recovered/Not Resolved]
  - Skin discolouration [Unknown]
  - Blood pressure increased [Recovered/Resolved]
  - Skin discolouration [Recovering/Resolving]
  - Dry skin [Recovered/Resolved]
  - Oral discomfort [Recovered/Resolved]
  - Chest pain [Unknown]
  - Hair colour changes [Unknown]
  - Diarrhoea [Not Recovered/Not Resolved]

NARRATIVE: CASE EVENT DATE: 201510
